FAERS Safety Report 8399669-9 (Version None)
Quarter: 2012Q2

REPORT INFORMATION
  Report Type: 
  Country: None (occurrence: None)
  Receive Date: 20120531
  Receipt Date: 20120529
  Transmission Date: 20120825
  Serious: Yes (Other)
  Sender: FDA-Public Use
  Company Number: JP-SP-2012-02509

PATIENT
  Sex: Male
  Weight: 62.7 kg

DRUGS (5)
  1. ARICEPT [Concomitant]
  2. ALM [Concomitant]
  3. IMMUCYST [Suspect]
     Indication: BLADDER CANCER
     Route: 043
     Dates: start: 20110817, end: 20110927
  4. UNIPHYL [Concomitant]
  5. MUCOSOLVAN [Concomitant]

REACTIONS (2)
  - COUGH [None]
  - BOVINE TUBERCULOSIS [None]
